FAERS Safety Report 16114038 (Version 2)
Quarter: 2021Q2

REPORT INFORMATION
  Report Type: Spontaneous
  Country: US (occurrence: US)
  Receive Date: 20190325
  Receipt Date: 20210413
  Transmission Date: 20210716
  Serious: No
  Sender: FDA-Public Use
  Company Number: US-ALLERGAN-1768301US

PATIENT
  Age: 93 Year
  Sex: Female

DRUGS (4)
  1. TIMOLOL. [Concomitant]
     Active Substance: TIMOLOL
     Indication: INTRAOCULAR PRESSURE TEST ABNORMAL
     Dosage: 1 GTT, QAM
     Route: 047
  2. LUMIGAN [Suspect]
     Active Substance: BIMATOPROST
     Dosage: 1 GTT, QHS
     Route: 047
     Dates: start: 20171108
  3. LUMIGAN [Suspect]
     Active Substance: BIMATOPROST
     Indication: INTRAOCULAR PRESSURE TEST ABNORMAL
     Dosage: 1 GTT, QHS
     Route: 047
  4. LISINOPRIL. [Concomitant]
     Active Substance: LISINOPRIL
     Indication: HYPERTENSION
     Dosage: UNK
     Route: 048

REACTIONS (2)
  - Product dose omission issue [Unknown]
  - Product packaging quantity issue [Unknown]

NARRATIVE: CASE EVENT DATE: 201711
